FAERS Safety Report 25333469 (Version 1)
Quarter: 2025Q2

REPORT INFORMATION
  Report Type: Report from Study
  Country: US (occurrence: US)
  Receive Date: 20250520
  Receipt Date: 20250520
  Transmission Date: 20250716
  Serious: Yes (Hospitalization, Other)
  Sender: NOVARTIS
  Company Number: US-002147023-NVSC2025US045165

PATIENT
  Sex: Female

DRUGS (5)
  1. ILARIS [Suspect]
     Active Substance: CANAKINUMAB
     Indication: Pyrexia
     Route: 058
     Dates: start: 20191009
  2. ILARIS [Suspect]
     Active Substance: CANAKINUMAB
     Indication: Brucellosis
     Route: 058
     Dates: start: 20200915
  3. ILARIS [Suspect]
     Active Substance: CANAKINUMAB
     Route: 058
     Dates: start: 20231228
  4. ILARIS [Suspect]
     Active Substance: CANAKINUMAB
     Route: 058
     Dates: start: 20250313
  5. ILARIS [Suspect]
     Active Substance: CANAKINUMAB
     Dosage: 300 MG, QMO
     Route: 058

REACTIONS (4)
  - Ovarian disorder [Unknown]
  - Pyrexia [Unknown]
  - Abdominal pain [Unknown]
  - Pain [Unknown]
